FAERS Safety Report 6826045-X (Version None)
Quarter: 2010Q3

REPORT INFORMATION
  Report Type: 
  Country: None (occurrence: None)
  Receive Date: 20100709
  Receipt Date: 20100701
  Transmission Date: 20110219
  Serious: No
  Sender: FDA-Public Use
  Company Number: US-ASTRAZENECA-2007UW02397

PATIENT
  Age: 10772 Day
  Sex: Male
  Weight: 95.3 kg

DRUGS (10)
  1. SEROQUEL [Suspect]
     Indication: DEPRESSION
     Route: 048
     Dates: start: 20011213, end: 20060301
  2. SEROQUEL [Suspect]
     Route: 048
     Dates: start: 20011213
  3. LITHIUM CARBONATE [Concomitant]
     Dates: start: 19990101, end: 20020101
  4. DEPAKOTE [Concomitant]
     Dates: start: 19990101, end: 20020101
  5. VIAGRA [Concomitant]
     Indication: ERECTILE DYSFUNCTION
     Dates: start: 20010917
  6. DIAZEPAM [Concomitant]
     Dates: start: 20011213
  7. FLUOXETINE [Concomitant]
     Dates: start: 20020327
  8. SYNTHROID [Concomitant]
     Indication: HYPOTHYROIDISM
     Dates: start: 20030612
  9. AMBIEN [Concomitant]
     Dates: start: 20050707
  10. ZOLOFT [Concomitant]
     Dates: start: 20020715

REACTIONS (11)
  - ASTHMA [None]
  - BLOOD CHOLESTEROL INCREASED [None]
  - GASTROOESOPHAGEAL REFLUX DISEASE [None]
  - HEPATITIS [None]
  - HEPATITIS C [None]
  - HERNIA [None]
  - HIATUS HERNIA [None]
  - HYPERLIPIDAEMIA [None]
  - INFLUENZA [None]
  - PAIN [None]
  - TYPE 2 DIABETES MELLITUS [None]
